FAERS Safety Report 7965194 (Version 2)
Quarter: 2018Q3

REPORT INFORMATION
  Report Type: Report from Study
  Country: AU (occurrence: AU)
  Receive Date: 20110527
  Receipt Date: 20180827
  Transmission Date: 20181010
  Serious: Yes (Death, Other)
  Sender: FDA-Public Use
  Company Number: AU-PFIZER INC-2011115204

PATIENT
  Age: 28 Year
  Sex: Male

DRUGS (5)
  1. ALCOHOL. [Interacting]
     Active Substance: ALCOHOL
     Dosage: UNK
  2. METHAMPHETAMINE [Interacting]
     Active Substance: METHAMPHETAMINE
     Dosage: UNK
  3. METHYLENEDIOXYMETHAMPHETAMINE [Interacting]
     Active Substance: MIDOMAFETAMINE
     Dosage: UNK
  4. TETRAHYDROCANNABINOL [Interacting]
     Active Substance: DRONABINOL
     Dosage: UNK
  5. SERTRALINE HCL [Suspect]
     Active Substance: SERTRALINE HYDROCHLORIDE
     Dosage: UNK

REACTIONS (6)
  - Head injury [Fatal]
  - Back injury [Fatal]
  - Toxicity to various agents [Fatal]
  - Serotonin syndrome [Fatal]
  - Road traffic accident [Fatal]
  - Drug interaction [Fatal]
